FAERS Safety Report 7451231-8 (Version None)
Quarter: 2011Q2

REPORT INFORMATION
  Report Type: 
  Country: None (occurrence: None)
  Receive Date: 20110502
  Receipt Date: 20110419
  Transmission Date: 20111010
  Serious: Yes (Hospitalization)
  Sender: FDA-Public Use
  Company Number: PHFR2011GB02690

PATIENT
  Age: 64 Year
  Sex: Female
  Weight: 82.7 kg

DRUGS (6)
  1. PREDNISOLONE [Concomitant]
     Indication: COLITIS
     Dosage: 15 MG, UNK
     Route: 048
  2. TEGRETOL [Concomitant]
     Indication: TRIGEMINAL NEURALGIA
     Dosage: 200 MG, QID
     Route: 048
  3. ZOLEDRONIC ACID [Suspect]
     Indication: BREAST CANCER METASTATIC
     Dosage: 4 MG, UNK
     Route: 042
     Dates: start: 20110324, end: 20110324
  4. GABAPENTIN [Concomitant]
     Indication: TRIGEMINAL NEURALGIA
     Dosage: 300 MG, QID
     Route: 048
  5. ORAMORPH SR [Concomitant]
     Route: 048
  6. OMEPRAZOLE [Concomitant]
     Dosage: 30 MG, BID
     Route: 048

REACTIONS (3)
  - CIRCULATORY COLLAPSE [None]
  - PYREXIA [None]
  - CONFUSIONAL STATE [None]
